FAERS Safety Report 6842869-7 (Version None)
Quarter: 2010Q3

REPORT INFORMATION
  Report Type: 
  Country: None (occurrence: None)
  Receive Date: 20100714
  Receipt Date: 20071012
  Transmission Date: 20110219
  Serious: No
  Sender: FDA-Public Use
  Company Number: US-PFIZER INC-2007066149

PATIENT
  Sex: Female
  Weight: 90 kg

DRUGS (7)
  1. CHANTIX [Suspect]
     Indication: SMOKING CESSATION THERAPY
     Dates: start: 20070621
  2. EFFEXOR [Concomitant]
  3. BUSPAR [Concomitant]
  4. AMITRIPTYLINE HYDROCHLORIDE [Concomitant]
  5. CLARITIN [Concomitant]
  6. ALBUTEROL [Concomitant]
  7. ALL OTHER THERAPEUTIC PRODUCTS [Concomitant]

REACTIONS (7)
  - DYSPHAGIA [None]
  - EAR PAIN [None]
  - MIGRAINE [None]
  - NIGHTMARE [None]
  - ORAL CANDIDIASIS [None]
  - OROPHARYNGEAL CANDIDIASIS [None]
  - WITHDRAWAL SYNDROME [None]
